FAERS Safety Report 24105962 (Version 1)
Quarter: 2024Q3

REPORT INFORMATION
  Report Type: Spontaneous
  Country: NL (occurrence: NL)
  Receive Date: 20240717
  Receipt Date: 20240717
  Transmission Date: 20241017
  Serious: Yes (Hospitalization)
  Sender: PFIZER
  Company Number: None

PATIENT
  Age: 42 Year
  Sex: Female
  Weight: 149 kg

DRUGS (1)
  1. DALTEPARIN SODIUM [Suspect]
     Active Substance: DALTEPARIN SODIUM
     Indication: Anticoagulant therapy
     Dosage: 1 DF, SINGLE
     Dates: start: 20240617, end: 20240617

REACTIONS (3)
  - Rash erythematous [Recovered/Resolved]
  - Head discomfort [Recovered/Resolved]
  - Pruritus [Recovered/Resolved]
